FAERS Safety Report 15658120 (Version 1)
Quarter: 2018Q4

REPORT INFORMATION
  Report Type: Spontaneous
  Country: US (occurrence: US)
  Receive Date: 20181126
  Receipt Date: 20181126
  Transmission Date: 20190205
  Serious: No
  Sender: FDA-Public Use
  Company Number: US-BAUSCH-BL-2018-007951

PATIENT
  Sex: Female

DRUGS (2)
  1. TIMOPTIC [Suspect]
     Active Substance: TIMOLOL MALEATE
     Indication: INTRAOCULAR PRESSURE TEST
     Route: 047
     Dates: start: 2016, end: 20180317
  2. TIMOPTIC [Suspect]
     Active Substance: TIMOLOL MALEATE
     Dosage: RECENT FILL
     Route: 047
     Dates: start: 201803

REACTIONS (6)
  - Intraocular pressure increased [Not Recovered/Not Resolved]
  - Product dose omission [Recovered/Resolved]
  - Alopecia [Not Recovered/Not Resolved]
  - Ocular hyperaemia [Unknown]
  - Product quality issue [Not Recovered/Not Resolved]
  - Photosensitivity reaction [Not Recovered/Not Resolved]

NARRATIVE: CASE EVENT DATE: 2017
